FAERS Safety Report 5990835-6 (Version None)
Quarter: 2008Q4

REPORT INFORMATION
  Report Type: 
  Country: None (occurrence: None)
  Receive Date: 20081202
  Receipt Date: 20071108
  Transmission Date: 20090506
  Serious: Yes (Other)
  Sender: FDA-Public Use
  Company Number: WAES 0711USA02148

PATIENT
  Age: 77 Year
  Sex: Female
  Weight: 56.6996 kg

DRUGS (4)
  1. FOSAMAX [Suspect]
     Dosage: 10 MG/PO
     Route: 048
     Dates: start: 19980101, end: 20060501
  2. FOSAMAX [Suspect]
     Dosage: 70 MG/PO
     Route: 048
  3. LIPITOR [Concomitant]
  4. SPORANOX [Concomitant]

REACTIONS (9)
  - ABDOMINAL PAIN [None]
  - ACTINIC KERATOSIS [None]
  - DERMATOPHYTOSIS [None]
  - ECZEMA NUMMULAR [None]
  - HYPERKERATOSIS [None]
  - IMPLANT SITE INFECTION [None]
  - NASOPHARYNGITIS [None]
  - OSTEONECROSIS [None]
  - POST PROCEDURAL INFECTION [None]
